FAERS Safety Report 9093411 (Version 1)
Quarter: 2013Q1

REPORT INFORMATION
  Report Type: Spontaneous
  Country: US (occurrence: US)
  Receive Date: 20130218
  Receipt Date: 20130218
  Transmission Date: 20140127
  Serious: No
  Sender: FDA-Public Use
  Company Number: US-009507513-1302USA004008

PATIENT
  Age: 44 Year
  Sex: Female

DRUGS (1)
  1. NOROXIN [Suspect]
     Indication: URINARY TRACT INFECTION
     Dosage: 400 MG, BID
     Route: 048
     Dates: start: 201204

REACTIONS (7)
  - Muscle injury [Recovering/Resolving]
  - Tendon injury [Recovering/Resolving]
  - Insomnia [Recovering/Resolving]
  - Neuropathy peripheral [Recovering/Resolving]
  - Arthralgia [Recovering/Resolving]
  - Tinnitus [Recovering/Resolving]
  - Anxiety [Recovering/Resolving]
